FAERS Safety Report 19423079 (Version 1)
Quarter: 2021Q2

REPORT INFORMATION
  Report Type: Spontaneous
  Country: IT (occurrence: IT)
  Receive Date: 20210616
  Receipt Date: 20210616
  Transmission Date: 20210717
  Serious: Yes (Other)
  Sender: FDA-Public Use
  Company Number: NVSC2021IT132953

PATIENT
  Age: 56 Year
  Sex: Female

DRUGS (2)
  1. LAPATINIB [Suspect]
     Active Substance: LAPATINIB
     Indication: INTRADUCTAL PROLIFERATIVE BREAST LESION
     Dosage: 750 MG, QD
     Route: 065
     Dates: start: 202011
  2. CAPECITABINE. [Suspect]
     Active Substance: CAPECITABINE
     Indication: INTRADUCTAL PROLIFERATIVE BREAST LESION
     Dosage: 1000 MG, QD
     Route: 065
     Dates: start: 202011

REACTIONS (1)
  - Thrombocytopenia [Unknown]
